FAERS Safety Report 6695779-2 (Version None)
Quarter: 2010Q2

REPORT INFORMATION
  Report Type: 
  Country: None (occurrence: None)
  Receive Date: 20100423
  Receipt Date: 20100423
  Transmission Date: 20101027
  Serious: Yes (Other)
  Sender: FDA-Public Use
  Company Number: None

PATIENT
  Age: 97 Year
  Sex: Female

DRUGS (1)
  1. COLCHICINE [Suspect]

REACTIONS (4)
  - ASTHENIA [None]
  - NAUSEA [None]
  - ORAL DISCOMFORT [None]
  - PRESYNCOPE [None]
